FAERS Safety Report 6386136-7 (Version None)
Quarter: 2009Q4

REPORT INFORMATION
  Report Type: 
  Country: None (occurrence: None)
  Receive Date: 20091002
  Receipt Date: 20081126
  Transmission Date: 20100525
  Serious: No
  Sender: FDA-Public Use
  Company Number: US-ASTRAZENECA-2008UW26460

PATIENT
  Age: 71 Year
  Sex: Female
  Weight: 72.6 kg

DRUGS (12)
  1. ARIMIDEX [Suspect]
     Route: 048
  2. SYMBICORT [Concomitant]
     Route: 055
  3. SINGULAIR [Concomitant]
  4. ADVAIR DISKUS 100/50 [Concomitant]
  5. FLOMAX [Concomitant]
  6. VITAMINS [Concomitant]
  7. CALCIUM [Concomitant]
     Dosage: 1600 MG
  8. VITAMIN D [Concomitant]
     Dosage: 1000 MG
  9. LUTEINE [Concomitant]
  10. VIT B PLUS [Concomitant]
  11. FISH OIL [Concomitant]
  12. PROVENTIL-HFA [Concomitant]

REACTIONS (2)
  - OSTEOARTHRITIS [None]
  - PAIN [None]
